FAERS Safety Report 4363925-1 (Version None)
Quarter: 2004Q2

REPORT INFORMATION
  Report Type: 
  Country: None (occurrence: None)
  Receive Date: 20040518
  Receipt Date: 20040206
  Transmission Date: 20050107
  Serious: No
  Sender: FDA-Public Use
  Company Number: PHEH2003US10567

PATIENT
  Age: 77 Year
  Sex: Male

DRUGS (5)
  1. GLEEVEC [Suspect]
     Indication: CHRONIC MYELOID LEUKAEMIA
     Dosage: 300 MG, QD, ORAL
     Route: 048
     Dates: start: 20031103
  2. ZANTAC [Concomitant]
  3. INDERAL [Concomitant]
  4. FLOMAX ^BOEHRINGER INGELHEIM^ (TAMSULOSIN HYDROCHLORIDE) [Concomitant]
  5. FERGON [Concomitant]

REACTIONS (4)
  - ANXIETY [None]
  - EYE SWELLING [None]
  - OEDEMA PERIPHERAL [None]
  - SCROTAL OEDEMA [None]
